FAERS Safety Report 8571783-4 (Version None)
Quarter: 2012Q2

REPORT INFORMATION
  Report Type: 
  Country: None (occurrence: None)
  Receive Date: 20120418
  Receipt Date: 20090526
  Transmission Date: 20120825
  Serious: Yes (Other)
  Sender: FDA-Public Use
  Company Number: PHEH2009US05284

PATIENT
  Sex: Male

DRUGS (2)
  1. CARVEDILOL [Concomitant]
  2. DIOVAN HCT [Suspect]
     Dosage: 325/25 MG/DAY 160/25 MG/DAY

REACTIONS (1)
  - HEADACHE [None]
